FAERS Safety Report 10534028 (Version 2)
Quarter: 2014Q4

REPORT INFORMATION
  Report Type: Report from Study
  Country: AU (occurrence: AU)
  Receive Date: 20141022
  Receipt Date: 20141116
  Transmission Date: 20150529
  Serious: Yes (Hospitalization)
  Sender: FDA-Public Use
  Company Number: PHHY2014AU137791

PATIENT
  Age: 28 Year
  Sex: Male

DRUGS (3)
  1. DULOXETINE [Concomitant]
     Active Substance: DULOXETINE
     Indication: DEPRESSION
     Dosage: 60 MG AT MORNING
     Route: 048
  2. CLOZARIL [Suspect]
     Active Substance: CLOZAPINE
     Indication: SCHIZOPHRENIA
     Dosage: 300 MG AT NIGHT
     Route: 048
     Dates: start: 20090304
  3. ARIPIPRAZOLE. [Concomitant]
     Active Substance: ARIPIPRAZOLE
     Indication: PSYCHOTIC DISORDER
     Dosage: 15 MG IN MORNING
     Route: 048

REACTIONS (2)
  - Antipsychotic drug level below therapeutic [Unknown]
  - Mental disorder [Unknown]

NARRATIVE: CASE EVENT DATE: 20141021
